FAERS Safety Report 10479051 (Version 15)
Quarter: 2016Q4

REPORT INFORMATION
  Report Type: Report from Study
  Country: US (occurrence: US)
  Receive Date: 20140926
  Receipt Date: 20161217
  Transmission Date: 20170206
  Serious: Yes (Hospitalization, Other)
  Sender: FDA-Public Use
  Company Number: PHEH2014US010494

PATIENT
  Age: 30 Year
  Sex: Female
  Weight: 102.4 kg

DRUGS (38)
  1. PEPCID [Concomitant]
     Active Substance: FAMOTIDINE
     Indication: PRODUCT USED FOR UNKNOWN INDICATION
     Route: 065
  2. IBUPROFEN. [Concomitant]
     Active Substance: IBUPROFEN
     Indication: PRODUCT USED FOR UNKNOWN INDICATION
     Dosage: 800 MG, PRN  (Q8H) (1 TAB BY MOUTH EVERY 8 HRS AS NEEDED FOR PAIN))
     Route: 048
     Dates: start: 20140725, end: 20141219
  3. AVONEX [Suspect]
     Active Substance: INTERFERON BETA-1A
     Indication: PRODUCT USED FOR UNKNOWN INDICATION
     Dosage: UNK
     Route: 065
     Dates: start: 20140614
  4. PREDNISONE. [Concomitant]
     Active Substance: PREDNISONE
     Indication: PRODUCT USED FOR UNKNOWN INDICATION
     Route: 065
  5. ALBUTEROL. [Concomitant]
     Active Substance: ALBUTEROL
     Dosage: 2.5 MG/ML, PRN
     Dates: start: 20141219
  6. NEOSYNEPHRINE [Concomitant]
     Active Substance: PHENYLEPHRINE HYDROCHLORIDE
     Indication: PRODUCT USED FOR UNKNOWN INDICATION
     Dosage: 100 MCG/ML, PRN
     Route: 042
     Dates: start: 20141125, end: 20141125
  7. ZOFRAN [Concomitant]
     Active Substance: ONDANSETRON HYDROCHLORIDE
     Indication: PRODUCT USED FOR UNKNOWN INDICATION
     Dosage: 4 MG (4 MG/2 ML), PRN
     Route: 042
     Dates: start: 20140724, end: 20140725
  8. ACICLOVIR [Suspect]
     Active Substance: ACYCLOVIR
     Indication: ASTHMA
     Dosage: 400 MG, BID
     Route: 048
     Dates: start: 20140614
  9. SERTRALINE [Concomitant]
     Active Substance: SERTRALINE HYDROCHLORIDE
     Indication: PRODUCT USED FOR UNKNOWN INDICATION
     Route: 065
  10. COPAXONE [Concomitant]
     Active Substance: GLATIRAMER ACETATE
     Indication: PRODUCT USED FOR UNKNOWN INDICATION
     Route: 065
  11. ACETAMINOPHEN. [Concomitant]
     Active Substance: ACETAMINOPHEN
     Dosage: 325 MG, PRN
     Route: 048
     Dates: end: 20140727
  12. IRON [Suspect]
     Active Substance: IRON
     Indication: IRON DEFICIENCY
     Dosage: 28 MG, QD
     Route: 048
     Dates: start: 20140613
  13. HYDROCORTISON [Concomitant]
     Active Substance: HYDROCORTISONE
     Indication: PRODUCT USED FOR UNKNOWN INDICATION
     Dosage: UNK, PRN
     Route: 054
     Dates: start: 20140725, end: 20140727
  14. COMPAZINE [Concomitant]
     Active Substance: PROCHLORPERAZINE MALEATE
     Indication: PRODUCT USED FOR UNKNOWN INDICATION
     Dosage: 10 MG, PRN
     Route: 048
     Dates: start: 20140725, end: 20140727
  15. FENTANYL CITRATE AND ROPIVACAINE HCL [Concomitant]
     Indication: PRODUCT USED FOR UNKNOWN INDICATION
     Dosage: UNK
     Route: 008
     Dates: start: 20140725, end: 20140725
  16. GILENYA [Suspect]
     Active Substance: FINGOLIMOD HYDROCHLORIDE
     Indication: RELAPSING-REMITTING MULTIPLE SCLEROSIS
     Dosage: 0.5 MG, QD
     Route: 065
     Dates: start: 20130201, end: 20131210
  17. AMPYRA [Concomitant]
     Active Substance: DALFAMPRIDINE
     Indication: PRODUCT USED FOR UNKNOWN INDICATION
     Route: 065
  18. PSYLLIUM [Concomitant]
     Active Substance: PLANTAGO SEED
     Indication: PRODUCT USED FOR UNKNOWN INDICATION
     Dosage: UNK UNK, QD
     Route: 048
     Dates: end: 20141219
  19. BENADRYL [Concomitant]
     Active Substance: DIPHENHYDRAMINE HYDROCHLORIDE
     Indication: PRODUCT USED FOR UNKNOWN INDICATION
     Dosage: 25 MG, QD
     Route: 048
     Dates: start: 20140726, end: 20140727
  20. PRENATAL [Concomitant]
     Active Substance: VITAMINS
     Indication: PRODUCT USED FOR UNKNOWN INDICATION
     Dosage: 800 UG, QD
     Route: 048
     Dates: start: 20140725, end: 20140725
  21. ACETAMINOPHEN. [Concomitant]
     Active Substance: ACETAMINOPHEN
     Indication: PRODUCT USED FOR UNKNOWN INDICATION
     Dosage: 650 MG, PRN
     Route: 048
     Dates: start: 20140725
  22. CYTOTEC [Concomitant]
     Active Substance: MISOPROSTOL
     Dosage: 800 UG, QD
     Route: 054
     Dates: start: 20140725, end: 20140725
  23. ZOVIRAX [Concomitant]
     Active Substance: ACYCLOVIR
     Indication: PRODUCT USED FOR UNKNOWN INDICATION
     Dosage: 400 MG, BID
     Route: 048
     Dates: start: 20140724, end: 20140725
  24. RABIFAST [Suspect]
     Active Substance: RABEPRAZOLE SODIUM
     Indication: PRODUCT USED FOR UNKNOWN INDICATION
     Dosage: UNK
     Route: 065
  25. PROAIR (FLUTICASONE PROPIONATE) [Suspect]
     Active Substance: FLUTICASONE PROPIONATE
     Indication: ASTHMA
     Dosage: 2 DF, PRN (PUFFS)
     Route: 048
     Dates: start: 20060101
  26. ALBUTEROL. [Concomitant]
     Active Substance: ALBUTEROL
     Indication: PRODUCT USED FOR UNKNOWN INDICATION
     Dosage: 2.5 MG, PRN (2.5 MG IN 3 ML)
     Route: 065
     Dates: start: 20110824, end: 20141219
  27. METHERGINE [Concomitant]
     Active Substance: METHYLERGONOVINE MALEATE
     Indication: PRODUCT USED FOR UNKNOWN INDICATION
     Dosage: 0.2 MG, PRN (Q6H)
     Dates: start: 20140726, end: 20140727
  28. PITOCIN [Concomitant]
     Active Substance: OXYTOCIN
     Indication: PRODUCT USED FOR UNKNOWN INDICATION
     Dosage: 500 ML/MIN, PRN
     Route: 042
     Dates: start: 20140725, end: 20140725
  29. DEMEROL [Concomitant]
     Active Substance: MEPERIDINE HYDROCHLORIDE
     Indication: PRODUCT USED FOR UNKNOWN INDICATION
     Dosage: 50 MG, QD
     Route: 042
     Dates: start: 20140725, end: 20140725
  30. SYMBICORT [Suspect]
     Active Substance: BUDESONIDE\FORMOTEROL FUMARATE DIHYDRATE
     Indication: ASTHMA
     Dosage: 2 DF, BID (PUFFS)
     Route: 048
     Dates: start: 20130201
  31. AMANTADINE [Concomitant]
     Active Substance: AMANTADINE
     Indication: PRODUCT USED FOR UNKNOWN INDICATION
     Route: 065
  32. FERROUS SULFATE. [Concomitant]
     Active Substance: FERROUS SULFATE
     Indication: PRODUCT USED FOR UNKNOWN INDICATION
     Dosage: 1 DF, QD
     Route: 048
     Dates: end: 20141219
  33. DERMOPLAST PAIN RELIEVING [Concomitant]
     Active Substance: BENZOCAINE\MENTHOL
     Indication: PRODUCT USED FOR UNKNOWN INDICATION
     Dosage: UNK UNK, PRN
     Route: 061
     Dates: start: 20140725, end: 20140727
  34. RINGER ACETATE [Concomitant]
     Indication: PRODUCT USED FOR UNKNOWN INDICATION
     Dosage: 1000 ML, UNK
     Route: 042
     Dates: start: 20140725, end: 20140727
  35. CYTOTEC [Concomitant]
     Active Substance: MISOPROSTOL
     Indication: PRODUCT USED FOR UNKNOWN INDICATION
     Dosage: 25 UG, PRN
     Route: 065
     Dates: start: 20140724
  36. CALCIUM CARBONATE. [Concomitant]
     Active Substance: CALCIUM CARBONATE
     Indication: PRODUCT USED FOR UNKNOWN INDICATION
     Dosage: 500 MG, QD
     Route: 048
     Dates: end: 20141219
  37. PRENATAL [Suspect]
     Active Substance: VITAMINS
     Indication: PRODUCT USED FOR UNKNOWN INDICATION
     Dosage: 1 MG, QD
     Route: 048
     Dates: start: 20131208, end: 20141219
  38. WITCH HAZEL. [Concomitant]
     Active Substance: WITCH HAZEL
     Indication: PRODUCT USED FOR UNKNOWN INDICATION
     Dosage: UNK UNK, PRN
     Route: 061
     Dates: start: 20140725, end: 20140727

REACTIONS (8)
  - Headache [Recovered/Resolved]
  - Pre-eclampsia [Recovered/Resolved]
  - Premature labour [Recovered/Resolved]
  - Swelling [Recovered/Resolved]
  - Blood pressure increased [Recovered/Resolved]
  - Glucose tolerance impaired in pregnancy [Unknown]
  - Maternal exposure during pregnancy [Recovered/Resolved]
  - Central nervous system lesion [Unknown]

NARRATIVE: CASE EVENT DATE: 20140413
